FAERS Safety Report 5314094-2 (Version None)
Quarter: 2007Q2

REPORT INFORMATION
  Report Type: 
  Country: None (occurrence: None)
  Receive Date: 20070501
  Receipt Date: 20070419
  Transmission Date: 20071010
  Serious: Yes (Other)
  Sender: FDA-Public Use
  Company Number: US-PFIZER INC-2007032335

PATIENT
  Sex: Female
  Weight: 65.8 kg

DRUGS (5)
  1. LYRICA [Suspect]
     Indication: DIABETIC NEUROPATHY
     Dates: start: 20060801
  2. LANTUS [Concomitant]
     Dates: start: 20000101
  3. ADVIL [Concomitant]
  4. GLYBURIDE [Concomitant]
  5. NOVOLOG [Concomitant]

REACTIONS (1)
  - IMPAIRED DRIVING ABILITY [None]
